FAERS Safety Report 9159497 (Version 1)
Quarter: 2013Q1

REPORT INFORMATION
  Report Type: Spontaneous
  Country: US (occurrence: None)
  Receive Date: 20130312
  Receipt Date: 20130312
  Transmission Date: 20140127
  Serious: No
  Sender: FDA-Public Use
  Company Number: None

PATIENT
  Age: 60 Year
  Sex: Male
  Weight: 81.65 kg

DRUGS (1)
  1. OMEPRAZOLE 20MG TWICE DAILY [Suspect]
     Indication: GASTROOESOPHAGEAL REFLUX DISEASE
     Route: 048
     Dates: start: 20130308, end: 20130309

REACTIONS (3)
  - Epistaxis [None]
  - Gastrointestinal haemorrhage [None]
  - Product substitution issue [None]
